FAERS Safety Report 23386372 (Version 5)
Quarter: 2024Q1

REPORT INFORMATION
  Report Type: Spontaneous
  Country: JP (occurrence: JP)
  Receive Date: 20240110
  Receipt Date: 20240216
  Transmission Date: 20240410
  Serious: Yes (Death, Other)
  Sender: FDA-Public Use
  Company Number: JP-BRISTOL-MYERS SQUIBB COMPANY-2024-004815

PATIENT
  Age: 43 Year
  Sex: Male

DRUGS (3)
  1. YERVOY [Suspect]
     Active Substance: IPILIMUMAB
     Indication: Malignant melanoma
     Route: 041
  2. OPDIVO [Suspect]
     Active Substance: NIVOLUMAB
     Indication: Malignant melanoma
  3. DACARBAZINE [Suspect]
     Active Substance: DACARBAZINE
     Indication: Malignant melanoma

REACTIONS (1)
  - Malignant neoplasm progression [Fatal]
